FAERS Safety Report 9881105 (Version 1)
Quarter: 2014Q1

REPORT INFORMATION
  Report Type: Spontaneous
  Country: US (occurrence: US)
  Receive Date: 20140207
  Receipt Date: 20140207
  Transmission Date: 20141002
  Serious: No
  Sender: FDA-Public Use
  Company Number: US-PFIZER INC-2014031181

PATIENT
  Sex: Female

DRUGS (2)
  1. PROTONIX [Suspect]
     Indication: GASTROOESOPHAGEAL REFLUX DISEASE
     Dosage: 40 MG, 1X/DAY (ON AND OFF WHEN REQUIRED)
     Route: 048
     Dates: start: 2011
  2. BONIVA [Concomitant]
     Dosage: UNK

REACTIONS (1)
  - Gastric polyps [Unknown]
